FAERS Safety Report 7307309-2 (Version None)
Quarter: 2011Q1

REPORT INFORMATION
  Report Type: 
  Country: None (occurrence: None)
  Receive Date: 20110209
  Receipt Date: 20110203
  Transmission Date: 20110831
  Serious: Yes (Disabling)
  Sender: FDA-Public Use
  Company Number: OSCN-PR-1102L-0070

PATIENT
  Age: 76 Year
  Sex: Male

DRUGS (2)
  1. OMNISCAN [Suspect]
     Indication: PAIN
     Dosage: 50 ML, SINGLE DOSE. I.A.
     Route: 014
  2. UNSPECIFIED IODINATED CONTRAST AGENT [Suspect]
     Indication: PAIN
     Dosage: 25 ML, SINGLE DOSE, I.A.
     Route: 014

REACTIONS (1)
  - RENAL FAILURE ACUTE [None]
